FAERS Safety Report 4463391-1 (Version None)
Quarter: 2004Q3

REPORT INFORMATION
  Report Type: 
  Country: None (occurrence: None)
  Receive Date: 20040928
  Receipt Date: 20040915
  Transmission Date: 20050211
  Serious: Yes (Hospitalization)
  Sender: FDA-Public Use
  Company Number: A0525776A

PATIENT
  Age: 20 Year
  Sex: Female

DRUGS (2)
  1. WELLBUTRIN XL TABLET-EXTENDED RELEASE (BUPROPION HYDROCHLORIDE) [Suspect]
     Indication: DEPRESSION
     Dosage: 300 MG/ ORAL
     Route: 048
     Dates: start: 20040801, end: 20040913
  2. AMITRIPTYLINE (FORMULATION UNKNOWN) (AMITRIPTYLINE) [Suspect]

REACTIONS (2)
  - INTENTIONAL OVERDOSE [None]
  - SUICIDE ATTEMPT [None]
